FAERS Safety Report 5668834-3 (Version None)
Quarter: 2008Q1

REPORT INFORMATION
  Report Type: 
  Country: None (occurrence: None)
  Receive Date: 20080317
  Receipt Date: 20080214
  Transmission Date: 20080703
  Serious: No
  Sender: FDA-Public Use
  Company Number: US-BAYER-200814460NA

PATIENT
  Age: 16 Year
  Sex: Female
  Weight: 54 kg

DRUGS (1)
  1. YAZ [Suspect]
     Indication: CONTRACEPTION
     Route: 048
     Dates: start: 20070801

REACTIONS (4)
  - ACNE [None]
  - METRORRHAGIA [None]
  - MUSCULAR WEAKNESS [None]
  - VULVOVAGINAL DRYNESS [None]
